FAERS Safety Report 24057536 (Version 3)
Quarter: 2024Q4

REPORT INFORMATION
  Report Type: Report from Study
  Country: NL (occurrence: NL)
  Receive Date: 20240706
  Receipt Date: 20241009
  Transmission Date: 20250114
  Serious: Yes (Other)
  Sender: ABBVIE
  Company Number: NL-ABBVIE-5828074

PATIENT
  Age: 55 Year
  Sex: Male

DRUGS (4)
  1. CARBIDOPA\LEVODOPA [Suspect]
     Active Substance: CARBIDOPA\LEVODOPA
     Indication: Parkinson^s disease
     Dosage: MD:8.6ML, CD: 4.6 ML/H, ED:1.00ML?REMAINS AT 16 HOURS
     Route: 050
     Dates: start: 20240702, end: 20240909
  2. CARBIDOPA\LEVODOPA [Suspect]
     Active Substance: CARBIDOPA\LEVODOPA
     Dosage: MD:11.6ML, CD: 4.7 ML/H, ED:1.00ML, REMAINS AT 16 HOURS
     Route: 050
     Dates: start: 20240917
  3. CARBIDOPA\LEVODOPA [Suspect]
     Active Substance: CARBIDOPA\LEVODOPA
     Dosage: MD:11.6ML, CD: 4.7 ML/H, ED:1.00ML,  REMAINS AT 16 HOURS
     Route: 050
     Dates: start: 20240909, end: 20240917
  4. APOMORPHINE [Suspect]
     Active Substance: APOMORPHINE
     Indication: Product used for unknown indication
     Route: 065

REACTIONS (37)
  - Soft tissue necrosis [Unknown]
  - Emotional disorder [Not Recovered/Not Resolved]
  - Urinary retention [Unknown]
  - Dyskinesia [Not Recovered/Not Resolved]
  - Speech disorder [Not Recovered/Not Resolved]
  - Balance disorder [Not Recovered/Not Resolved]
  - On and off phenomenon [Not Recovered/Not Resolved]
  - Muscle spasms [Recovered/Resolved]
  - Unevaluable event [Recovered/Resolved]
  - Eye disorder [Not Recovered/Not Resolved]
  - Mobility decreased [Recovered/Resolved]
  - Prostatitis [Not Recovered/Not Resolved]
  - Reduced facial expression [Not Recovered/Not Resolved]
  - Freezing phenomenon [Not Recovered/Not Resolved]
  - Skin discolouration [Not Recovered/Not Resolved]
  - Muscle rigidity [Recovered/Resolved]
  - Decreased appetite [Not Recovered/Not Resolved]
  - Myalgia [Not Recovered/Not Resolved]
  - Living in residential institution [Not Recovered/Not Resolved]
  - Wound necrosis [Unknown]
  - Abnormal dreams [Recovered/Resolved]
  - Nocturia [Recovered/Resolved]
  - Disease risk factor [Not Recovered/Not Resolved]
  - Gait inability [Not Recovered/Not Resolved]
  - Stoma site discharge [Not Recovered/Not Resolved]
  - Tension [Not Recovered/Not Resolved]
  - Fall [Not Recovered/Not Resolved]
  - Memory impairment [Not Recovered/Not Resolved]
  - Pain [Recovering/Resolving]
  - Stress [Not Recovered/Not Resolved]
  - Loss of personal independence in daily activities [Unknown]
  - Diarrhoea [Not Recovered/Not Resolved]
  - Prostatic operation [Not Recovered/Not Resolved]
  - Nasopharyngitis [Not Recovered/Not Resolved]
  - Illness [Not Recovered/Not Resolved]
  - Nausea [Not Recovered/Not Resolved]
  - Eructation [Not Recovered/Not Resolved]

NARRATIVE: CASE EVENT DATE: 20240101
